FAERS Safety Report 6795644-6 (Version None)
Quarter: 2010Q2

REPORT INFORMATION
  Report Type: 
  Country: None (occurrence: None)
  Receive Date: 20100625
  Receipt Date: 20100622
  Transmission Date: 20101027
  Serious: Yes (Disabling)
  Sender: FDA-Public Use
  Company Number: US-MERCK-1006USA03827

PATIENT
  Sex: Female

DRUGS (1)
  1. FOSAMAX [Suspect]
     Route: 065
     Dates: start: 19970101, end: 20080627

REACTIONS (2)
  - ADVERSE EVENT [None]
  - FEMUR FRACTURE [None]
